FAERS Safety Report 9150937 (Version 1)
Quarter: 2013Q1

REPORT INFORMATION
  Report Type: Spontaneous
  Country: US (occurrence: US)
  Receive Date: 20130308
  Receipt Date: 20130308
  Transmission Date: 20140127
  Serious: No
  Sender: FDA-Public Use
  Company Number: US-GLAXOSMITHKLINE-A0966987A

PATIENT
  Age: 45 Year
  Sex: Female

DRUGS (1)
  1. WALGREENS NICOTINE LOZENGE MINT 2 MG [Suspect]
     Indication: EX-TOBACCO USER
     Dates: start: 20120215, end: 20120216

REACTIONS (1)
  - Toothache [Recovered/Resolved]
